FAERS Safety Report 19460100 (Version 1)
Quarter: 2021Q2

REPORT INFORMATION
  Report Type: Spontaneous
  Country: DE (occurrence: DE)
  Receive Date: 20210625
  Receipt Date: 20210625
  Transmission Date: 20210717
  Serious: Yes (Hospitalization, Other)
  Sender: FDA-Public Use
  Company Number: DE-AMGEN-DEUNI2021096535

PATIENT
  Age: 55 Year
  Sex: Male
  Weight: 72 kg

DRUGS (11)
  1. CARBOPLATIN. [Suspect]
     Active Substance: CARBOPLATIN
     Indication: NON-SMALL CELL LUNG CANCER
     Dosage: DOSE: 5 MG/MIN*MLON 16/DEC/2019, LAST DOSE OF CARBOPLATIN WAS ADMINISTERED.
     Route: 042
     Dates: start: 20190926
  2. GRANISETRON [Concomitant]
     Active Substance: GRANISETRON
     Dosage: 3 MILLIGRAM
     Route: 042
     Dates: start: 20190926
  3. FENISTIL [Concomitant]
     Active Substance: DIMETHINDENE
     Dosage: 4 MILLIGRAM
     Route: 042
     Dates: start: 20190926
  4. DEXAMETHASON [DEXAMETHASONE] [Concomitant]
     Active Substance: DEXAMETHASONE
     Dosage: 24 MILLIGRAM
     Route: 042
     Dates: start: 20190926
  5. ALLOPURINOL. [Concomitant]
     Active Substance: ALLOPURINOL
     Dosage: 300 MILLIGRAM, QD
     Route: 048
     Dates: start: 20190926
  6. RANITIDIN [Concomitant]
     Active Substance: RANITIDINE HYDROCHLORIDE
     Dosage: 50 MILLIGRAM
     Route: 042
     Dates: start: 20190926
  7. ATEZOLIZUMAB. [Suspect]
     Active Substance: ATEZOLIZUMAB
     Indication: NON-SMALL CELL LUNG CANCER
     Dosage: 1200 MILLIGRAM
     Route: 042
     Dates: start: 20190926
  8. GRASTOFIL [Concomitant]
     Active Substance: FILGRASTIM
     Dosage: 48 MILLIGRAM, QD
     Route: 058
     Dates: start: 20191007, end: 20191216
  9. BEVACIZUMAB. [Suspect]
     Active Substance: BEVACIZUMAB
     Indication: NON-SMALL CELL LUNG CANCER
     Dosage: 15 MILLIGRAM/KILOGRAM
     Route: 042
     Dates: start: 20190926
  10. PACLITAXEL. [Suspect]
     Active Substance: PACLITAXEL
     Indication: NON-SMALL CELL LUNG CANCER
     Dosage: 175 MILLIGRAM/SQ. METER
     Route: 042
     Dates: start: 20190926
  11. DEXAMETHASON [DEXAMETHASONE] [Concomitant]
     Active Substance: DEXAMETHASONE
     Dosage: 36 MILLIGRAM
     Route: 048
     Dates: start: 20190927

REACTIONS (1)
  - Hepatitis [Recovered/Resolved]

NARRATIVE: CASE EVENT DATE: 20210515
